FAERS Safety Report 6303409-4 (Version None)
Quarter: 2009Q3

REPORT INFORMATION
  Report Type: 
  Country: None (occurrence: None)
  Receive Date: 20090810
  Receipt Date: 20090731
  Transmission Date: 20100115
  Serious: Yes (Other)
  Sender: FDA-Public Use
  Company Number: CA-PFIZER INC-2009228541

PATIENT
  Age: 88 Year

DRUGS (4)
  1. AROMASIN [Suspect]
     Dosage: UNK
     Dates: start: 20080101
  2. TYLENOL (CAPLET) [Concomitant]
     Dosage: UNK
  3. ATASOL [Concomitant]
     Dosage: UNK
  4. HYDROCHLOROTHIAZIDE [Concomitant]
     Dosage: UNK

REACTIONS (2)
  - BLOOD PRESSURE SYSTOLIC INCREASED [None]
  - BRONCHITIS [None]
